FAERS Safety Report 6897332-4 (Version None)
Quarter: 2010Q3

REPORT INFORMATION
  Report Type: 
  Country: None (occurrence: None)
  Receive Date: 20100729
  Receipt Date: 20100714
  Transmission Date: 20110219
  Serious: Yes (Other)
  Sender: FDA-Public Use
  Company Number: 2010US-35984

PATIENT
  Age: 60 Year
  Sex: Female

DRUGS (2)
  1. VERAPAMIL [Suspect]
     Indication: ANGINA UNSTABLE
     Dosage: 40 MG, QID
  2. PINDOLOL [Suspect]
     Indication: HYPERTENSION
     Dosage: 5 MG, BID

REACTIONS (7)
  - BRADYCARDIA [None]
  - CARDIAC FAILURE [None]
  - CORONARY ARTERY DISEASE [None]
  - DRUG INTERACTION [None]
  - HYPOTENSION [None]
  - NAUSEA [None]
  - PULMONARY OEDEMA [None]
